FAERS Safety Report 4762359-5 (Version None)
Quarter: 2005Q3

REPORT INFORMATION
  Report Type: 
  Country: None (occurrence: None)
  Receive Date: 20050907
  Receipt Date: 20050830
  Transmission Date: 20060218
  Serious: Yes (Hospitalization, Other)
  Sender: FDA-Public Use
  Company Number: GB-BRISTOL-MYERS SQUIBB COMPANY-13093745

PATIENT
  Age: 69 Year
  Sex: Male

DRUGS (4)
  1. CETUXIMAB [Suspect]
     Indication: COLORECTAL CANCER
     Route: 042
     Dates: start: 20050825, end: 20050825
  2. IRINOTECAN [Suspect]
     Indication: COLORECTAL CANCER
     Route: 042
     Dates: start: 20050811, end: 20050811
  3. WARFARIN [Concomitant]
     Dates: start: 20050512
  4. LANSOPRAZOLE [Concomitant]

REACTIONS (4)
  - FALL [None]
  - PYREXIA [None]
  - STAPHYLOCOCCAL INFECTION [None]
  - TACHYCARDIA [None]
